FAERS Safety Report 25012640 (Version 1)
Quarter: 2025Q1

REPORT INFORMATION
  Report Type: Spontaneous
  Country: CN (occurrence: CN)
  Receive Date: 20250226
  Receipt Date: 20250226
  Transmission Date: 20250408
  Serious: Yes (Other)
  Sender: ROCHE
  Company Number: CN-ROCHE-10000211924

PATIENT
  Age: 60 Year
  Sex: Female

DRUGS (15)
  1. ALECTINIB [Suspect]
     Active Substance: ALECTINIB
     Indication: Lung adenocarcinoma
     Route: 065
     Dates: start: 20210127
  2. BEVACIZUMAB [Suspect]
     Active Substance: BEVACIZUMAB
     Indication: Lung adenocarcinoma
     Route: 065
     Dates: start: 20210325
  3. CISPLATIN [Suspect]
     Active Substance: CISPLATIN
     Indication: Lung adenocarcinoma
     Route: 065
     Dates: start: 20210325
  4. PEMETREXED [Suspect]
     Active Substance: PEMETREXED
     Indication: Lung adenocarcinoma
     Route: 065
     Dates: start: 20210325
  5. SINTILIMAB [Concomitant]
     Active Substance: SINTILIMAB
     Dates: start: 20210628
  6. SINTILIMAB [Concomitant]
     Active Substance: SINTILIMAB
     Dates: start: 20220225
  7. SINTILIMAB [Concomitant]
     Active Substance: SINTILIMAB
     Dates: start: 20220824
  8. SINTILIMAB [Concomitant]
     Active Substance: SINTILIMAB
     Dates: start: 20221031
  9. CATEQUENTINIB [Concomitant]
     Active Substance: CATEQUENTINIB
     Dates: start: 20221031
  10. ALBUMIN HUMAN;PACLITAXEL [Concomitant]
     Dates: start: 20220824
  11. ALBUMIN HUMAN;PACLITAXEL [Concomitant]
     Dates: start: 20220225
  12. CARBOPLATIN [Concomitant]
     Active Substance: CARBOPLATIN
     Dates: start: 20220225
  13. PREDNISONE [Concomitant]
     Active Substance: PREDNISONE
  14. THYROXINE [Concomitant]
     Active Substance: LEVOTHYROXINE
  15. LORLATINIB [Concomitant]
     Active Substance: LORLATINIB

REACTIONS (1)
  - Disease progression [Unknown]
